FAERS Safety Report 15270280 (Version 4)
Quarter: 2019Q1

REPORT INFORMATION
  Report Type: Spontaneous
  Country: US (occurrence: US)
  Receive Date: 20180813
  Receipt Date: 20190117
  Transmission Date: 20190417
  Serious: No
  Sender: FDA-Public Use
  Company Number: US-PFIZER INC-2018323791

PATIENT
  Age: 42 Year
  Sex: Male
  Weight: 79 kg

DRUGS (1)
  1. GABAPENTIN. [Suspect]
     Active Substance: GABAPENTIN
     Indication: NEUROPATHY PERIPHERAL
     Dosage: 600 MG, 3X/DAY
     Route: 048
     Dates: start: 2012, end: 2012

REACTIONS (3)
  - Nausea [Recovered/Resolved]
  - Product use in unapproved indication [Unknown]
  - Drug hypersensitivity [Unknown]

NARRATIVE: CASE EVENT DATE: 2012
